FAERS Safety Report 9226243 (Version 2)
Quarter: 2013Q2

REPORT INFORMATION
  Report Type: Spontaneous
  Country: US (occurrence: US)
  Receive Date: 20130411
  Receipt Date: 20130416
  Transmission Date: 20140414
  Serious: Yes (Other)
  Sender: FDA-Public Use
  Company Number: US-PFIZER INC-2013111355

PATIENT
  Sex: Male

DRUGS (11)
  1. CHANTIX [Suspect]
     Indication: SMOKING CESSATION THERAPY
     Dosage: UNK
     Dates: start: 201007, end: 2010
  2. METHOTREXATE [Suspect]
     Indication: RHEUMATOID ARTHRITIS
     Dosage: 3 DF, 1X/DAY
     Dates: start: 2011, end: 2011
  3. METHOTREXATE [Suspect]
     Indication: RHEUMATOID ARTHRITIS
     Dosage: UNK
     Dates: start: 2011, end: 201111
  4. PREDNISONE [Suspect]
     Indication: RHEUMATOID ARTHRITIS
     Dosage: 50 MG,DAILY
     Dates: start: 201010, end: 2010
  5. PREDNISONE [Suspect]
     Dosage: 15 MG, 2X/DAY
     Dates: start: 2011
  6. PREDNISONE [Suspect]
     Dosage: 5 MG, DAILY
     Dates: start: 2013
  7. NABUMETONE [Suspect]
     Indication: RHEUMATOID ARTHRITIS
     Dosage: 500 MG, UNK
     Dates: start: 2011, end: 201201
  8. ARAVA [Suspect]
     Indication: RHEUMATOID ARTHRITIS
     Dosage: 20 MG, DAILY
     Dates: start: 201201
  9. ALEVE [Concomitant]
     Indication: HEADACHE
     Dosage: UNK
  10. TYLENOL [Concomitant]
     Indication: HEADACHE
     Dosage: UNK
  11. ADVIL [Concomitant]
     Indication: HEADACHE
     Dosage: UNK

REACTIONS (14)
  - Rheumatoid arthritis [Unknown]
  - Influenza [Recovered/Resolved]
  - Immune system disorder [Unknown]
  - Therapeutic response unexpected [Unknown]
  - Nightmare [Recovered/Resolved]
  - Headache [Unknown]
  - Arthralgia [Recovering/Resolving]
  - Joint swelling [Unknown]
  - Nausea [Unknown]
  - Activities of daily living impaired [Unknown]
  - Inflammation [Unknown]
  - Insomnia [Unknown]
  - Screaming [Unknown]
  - Drug ineffective [Unknown]
